FAERS Safety Report 12261147 (Version 1)
Quarter: 2016Q2

REPORT INFORMATION
  Report Type: Spontaneous
  Country: US (occurrence: US)
  Receive Date: 20160412
  Receipt Date: 20160412
  Transmission Date: 20160815
  Serious: No
  Sender: FDA-Public Use
  Company Number: US-INCYTE CORPORATION-2016IN000759

PATIENT
  Age: 80 Year
  Sex: Female
  Weight: 72.56 kg

DRUGS (2)
  1. JAKAFI [Suspect]
     Active Substance: RUXOLITINIB
     Indication: MYELOFIBROSIS
     Dosage: 15 MG, BID
     Route: 048
     Dates: start: 20151113, end: 20151216
  2. JAKAFI [Suspect]
     Active Substance: RUXOLITINIB
     Dosage: 15 MG, QD
     Route: 048

REACTIONS (6)
  - Fatigue [Recovered/Resolved]
  - Contusion [Recovered/Resolved]
  - Thrombocytopenia [Recovered/Resolved]
  - Platelet count decreased [Unknown]
  - Drug dose omission [Unknown]
  - Anaemia [Recovered/Resolved]

NARRATIVE: CASE EVENT DATE: 20151216
